FAERS Safety Report 6561795-4 (Version None)
Quarter: 2010Q1

REPORT INFORMATION
  Report Type: 
  Country: None (occurrence: None)
  Receive Date: 20100130
  Receipt Date: 20091026
  Transmission Date: 20100710
  Serious: Yes (Hospitalization)
  Sender: FDA-Public Use
  Company Number: US-ABBOTT-09P-163-0605167-00

PATIENT
  Sex: Male
  Weight: 149.82 kg

DRUGS (16)
  1. HUMIRA [Suspect]
     Indication: CROHN'S DISEASE
     Route: 058
     Dates: start: 20090601, end: 20091026
  2. HUMIRA [Suspect]
     Route: 058
     Dates: start: 20091026
  3. AMBIEN [Concomitant]
     Indication: SLEEP APNOEA SYNDROME
  4. VITAMIN B-12 [Concomitant]
     Indication: CROHN'S DISEASE
  5. FLOMAX [Concomitant]
     Indication: BENIGN PROSTATIC HYPERPLASIA
  6. LASIX [Concomitant]
     Indication: CHRONIC OBSTRUCTIVE PULMONARY DISEASE
  7. GLYBURIDE AND METFORMIN HYDROCHLORIDE [Concomitant]
     Indication: DIABETES MELLITUS
     Dosage: 5-500MG, TWO TABLETS DAILY
  8. LEVOTHROID [Concomitant]
     Indication: HYPOTHYROIDISM
  9. LYRICA [Concomitant]
     Indication: DRUG USE FOR UNKNOWN INDICATION
  10. MAGNESIUM OXIDE [Concomitant]
     Indication: DRUG USE FOR UNKNOWN INDICATION
  11. MELOXICAN [Concomitant]
     Indication: CROHN'S DISEASE
  12. NITROGLYCERIN [Concomitant]
     Indication: CORONARY ARTERY DISEASE
     Route: 060
  13. POTASSIUM [Concomitant]
     Indication: DRUG USE FOR UNKNOWN INDICATION
  14. SPIRONOLACTONE [Concomitant]
     Indication: CHRONIC OBSTRUCTIVE PULMONARY DISEASE
  15. WARFARIN SODIUM [Concomitant]
     Indication: CARDIAC DISORDER
  16. WARFARIN SODIUM [Concomitant]

REACTIONS (4)
  - CROHN'S DISEASE [None]
  - DRUG INEFFECTIVE [None]
  - NAUSEA [None]
  - VOMITING [None]
